FAERS Safety Report 4855107-1 (Version None)
Quarter: 2005Q4

REPORT INFORMATION
  Report Type: 
  Country: None (occurrence: None)
  Receive Date: 20051215
  Receipt Date: 20051205
  Transmission Date: 20060501
  Serious: Yes (Hospitalization)
  Sender: FDA-Public Use
  Company Number: SE-SANOFI-SYNTHELABO-A01200508424

PATIENT
  Age: 56 Year
  Sex: Female

DRUGS (3)
  1. STILNOCT [Suspect]
     Route: 048
     Dates: start: 20040904, end: 20040905
  2. ACETAMINOPHEN [Concomitant]
     Dosage: UNK
     Route: 048
  3. PRONAXEN [Concomitant]
     Dosage: UNK
     Route: 048

REACTIONS (3)
  - ANGIONEUROTIC OEDEMA [None]
  - OEDEMA MOUTH [None]
  - PHARYNGEAL OEDEMA [None]
